FAERS Safety Report 9865516 (Version 1)
Quarter: 2014Q1

REPORT INFORMATION
  Report Type: Spontaneous
  Country: US (occurrence: US)
  Receive Date: 20140203
  Receipt Date: 20140203
  Transmission Date: 20141002
  Serious: No
  Sender: FDA-Public Use
  Company Number: US-ALLERGAN-1309425US

PATIENT
  Age: 65 Year
  Sex: Female

DRUGS (16)
  1. RESTASIS [Suspect]
     Indication: DRY EYE
     Dosage: 2 GTT, BID
     Route: 047
     Dates: start: 2010
  2. LATANOPROST [Concomitant]
     Indication: GLAUCOMA
     Dosage: 2 GTT, QHS
     Route: 047
     Dates: start: 2011
  3. BRIMONIDINE TARTRATE, 0.2% [Concomitant]
     Indication: GLAUCOMA
     Dosage: 2 GTT, BID
     Route: 047
     Dates: start: 2012
  4. DORZOLAMIDE [Concomitant]
     Indication: GLAUCOMA
     Dosage: 2 GTT, BID
     Route: 047
     Dates: start: 201301
  5. DESOXYN [Concomitant]
     Indication: NARCOLEPSY
     Dosage: THREE EVERY MORNING
     Route: 048
     Dates: start: 1994
  6. DESOXYN [Concomitant]
     Dosage: TWO AT NOON
     Route: 048
  7. DESOXYN [Concomitant]
     Dosage: ONE AT 3PM
     Route: 048
  8. CITALOPRAM [Concomitant]
     Indication: DEPRESSION
     Dosage: 40 MG, QD
     Route: 048
     Dates: start: 201304
  9. CYMBALTA [Concomitant]
     Indication: DEPRESSION
     Dosage: UNK UNK, QAM
     Route: 048
  10. LANSOPRAZOLE [Concomitant]
     Indication: GASTROOESOPHAGEAL REFLUX DISEASE
     Dosage: 30 MG, QD
     Route: 048
  11. SIMVASTATIN [Concomitant]
     Indication: BLOOD CHOLESTEROL INCREASED
     Dosage: 80 MG, QD
     Route: 048
  12. LOSARTAN [Concomitant]
     Indication: HYPERTENSION
     Dosage: 100/25MG 1.5 TABS DAILY
     Route: 048
  13. KLOR-CON [Concomitant]
     Indication: SUPPLEMENTATION THERAPY
     Dosage: 30 MEQ, QD
     Route: 048
  14. FERROUS GLUCONATE [Concomitant]
     Indication: SUPPLEMENTATION THERAPY
     Dosage: 324 MG, UNK
     Route: 048
  15. ZOLPIDEM [Concomitant]
     Indication: INSOMNIA
     Dosage: 12.5 MG, QHS
     Route: 048
  16. BUPROPION                          /00700502/ [Concomitant]
     Indication: DYSPEPSIA
     Dosage: 150 MG, UNK
     Route: 048
     Dates: start: 201304

REACTIONS (1)
  - Dysgeusia [Recovered/Resolved]
